FAERS Safety Report 25019684 (Version 3)
Quarter: 2025Q2

REPORT INFORMATION
  Report Type: Report from Study
  Country: US (occurrence: US)
  Receive Date: 20250227
  Receipt Date: 20250605
  Transmission Date: 20250717
  Serious: Yes (Hospitalization)
  Sender: ALNYLAM PHARMACEUTICALS
  Company Number: US-ALNYLAM PHARMACEUTICALS, INC.-ALN-2025-001301

PATIENT

DRUGS (1)
  1. AMVUTTRA [Suspect]
     Active Substance: VUTRISIRAN
     Indication: Hereditary neuropathic amyloidosis
     Route: 065
     Dates: start: 20241125, end: 20241125

REACTIONS (7)
  - Syncope [Unknown]
  - Endocarditis [Unknown]
  - Cardiac pacemaker insertion [Unknown]
  - Blood pressure decreased [Unknown]
  - Memory impairment [Unknown]
  - Ammonia increased [Unknown]
  - Intentional dose omission [Unknown]
